FAERS Safety Report 10369780 (Version 2)
Quarter: 2014Q3

REPORT INFORMATION
  Report Type: Report from Study
  Country: DE (occurrence: DE)
  Receive Date: 20140808
  Receipt Date: 20140819
  Transmission Date: 20150326
  Serious: Yes (Hospitalization)
  Sender: FDA-Public Use
  Company Number: DE-AMGEN-DEUNI2014059012

PATIENT
  Age: 71 Year
  Sex: Male
  Weight: 68 kg

DRUGS (17)
  1. DENOSUMAB [Suspect]
     Active Substance: DENOSUMAB
     Indication: PROPHYLAXIS
     Dosage: 120 MG, Q4WK
     Route: 058
     Dates: start: 20131121
  2. CISPLATIN. [Concomitant]
     Active Substance: CISPLATIN
  3. MOVICOL                            /01749801/ [Concomitant]
     Dosage: UNK UNK, AS NECESSARY
     Route: 048
     Dates: start: 2013, end: 20140106
  4. DEXAMETHASONE. [Concomitant]
     Active Substance: DEXAMETHASONE
     Dosage: 8 MG, QD
     Route: 048
     Dates: start: 20131222, end: 20131224
  5. FOLINIC ACID [Concomitant]
     Active Substance: LEUCOVORIN
     Dosage: 0.4 MG, QD
     Route: 048
     Dates: start: 20130923, end: 20140106
  6. BELOC-ZOC COMP [Concomitant]
     Active Substance: HYDROCHLOROTHIAZIDE\METOPROLOL SUCCINATE
     Dosage: 47.5 MG, BID
     Dates: start: 2013, end: 20140106
  7. CIPROFLOXACIN. [Concomitant]
     Active Substance: CIPROFLOXACIN
     Dosage: 500 MG X 2
     Route: 048
     Dates: start: 20131220, end: 20131220
  8. BEVACIZUMAB [Concomitant]
     Active Substance: BEVACIZUMAB
  9. DUROGESIC [Concomitant]
     Active Substance: FENTANYL
     Dosage: 75 MCG/HR
     Route: 062
     Dates: start: 20131112, end: 20140106
  10. VITAMIN D                          /00107901/ [Concomitant]
     Active Substance: ERGOCALCIFEROL
     Dosage: 400 IU, QD
     Route: 048
     Dates: start: 20131121, end: 20140106
  11. EFFENTORA [Concomitant]
     Active Substance: FENTANYL CITRATE
     Dosage: 100 MG, AS NECESSARY
     Route: 048
     Dates: start: 20131112, end: 20140106
  12. AVASTIN [Concomitant]
     Active Substance: BEVACIZUMAB
  13. PEMETREXED [Concomitant]
     Active Substance: PEMETREXED
     Dosage: 990 MG, QD
     Route: 042
     Dates: start: 20131223, end: 20131223
  14. ACETYLSALICYLIC ACID [Concomitant]
     Active Substance: ASPIRIN
     Dosage: 100 MG, QD
     Route: 048
     Dates: start: 2013, end: 20140106
  15. CALCIUM [Concomitant]
     Active Substance: CALCIUM
     Dosage: 500 MG, QD
     Route: 048
     Dates: start: 20131121, end: 20140106
  16. PANTOPRAZOLE [Concomitant]
     Active Substance: PANTOPRAZOLE SODIUM
     Dosage: 40 MG, QD
     Route: 048
     Dates: start: 2013, end: 20140106
  17. ALIMTA [Concomitant]
     Active Substance: PEMETREXED DISODIUM

REACTIONS (2)
  - Lung infection [Recovered/Resolved]
  - Febrile infection [Recovered/Resolved]

NARRATIVE: CASE EVENT DATE: 20140106
